FAERS Safety Report 12643752 (Version 3)
Quarter: 2018Q2

REPORT INFORMATION
  Report Type: Spontaneous
  Country: US (occurrence: US)
  Receive Date: 20160811
  Receipt Date: 20180403
  Transmission Date: 20180711
  Serious: Yes (Life-Threatening, Hospitalization, Disabling, Other)
  Sender: FDA-Public Use
  Company Number: US-BTG INTERNATIONAL LTD-BTG00858

PATIENT
  Age: 2 Year
  Sex: Female

DRUGS (2)
  1. CROFAB [Suspect]
     Active Substance: CROTALIDAE POLYVALENT IMMUNE FAB (OVINE)
     Indication: SNAKE BITE
     Dosage: 6 VIALS INITIALLY, WITH 20 DOSES TOTAL
     Dates: start: 20160720, end: 20160720
  2. CROFAB [Suspect]
     Active Substance: CROTALIDAE POLYVALENT IMMUNE FAB (OVINE)
     Dosage: 14 ADDITIONAL DOSES
     Dates: start: 20160720, end: 20160720

REACTIONS (3)
  - Nerve injury [Unknown]
  - Haemorrhage [Unknown]
  - Gait disturbance [Unknown]

NARRATIVE: CASE EVENT DATE: 201607
